FAERS Safety Report 23662799 (Version 2)
Quarter: 2024Q2

REPORT INFORMATION
  Report Type: Spontaneous
  Country: UY (occurrence: UY)
  Receive Date: 20240322
  Receipt Date: 20240415
  Transmission Date: 20240716
  Serious: Yes (Other)
  Sender: FDA-Public Use
  Company Number: UY-SUN PHARMACEUTICAL INDUSTRIES LTD-2024R1-428151

PATIENT
  Age: 50 Year
  Sex: Male

DRUGS (5)
  1. MYCOPHENOLATE MOFETIL [Interacting]
     Active Substance: MYCOPHENOLATE MOFETIL
     Indication: Immunosuppression
     Route: 065
  2. CYCLOSPORINE [Interacting]
     Active Substance: CYCLOSPORINE
     Indication: Immunosuppression
     Route: 065
  3. CANNABIDIOL [Interacting]
     Active Substance: CANNABIDIOL
     Indication: Pain
     Dosage: 0.6MILLIGRAM/KG/DAY TWICE DAILY
     Route: 060
  4. CANNABIDIOL [Interacting]
     Active Substance: CANNABIDIOL
     Dosage: 1.2 MILLIGRAM/KG/D
     Route: 060
  5. CANNABIDIOL [Interacting]
     Active Substance: CANNABIDIOL
     Dosage: 1.6 MILLGRAM/KG/D TWICE DAILY
     Route: 060

REACTIONS (1)
  - Drug interaction [Unknown]
